FAERS Safety Report 4434715-6 (Version None)
Quarter: 2004Q3

REPORT INFORMATION
  Report Type: 
  Country: None (occurrence: None)
  Receive Date: 20040827
  Receipt Date: 20040520
  Transmission Date: 20050211
  Serious: No
  Sender: FDA-Public Use
  Company Number: US-BRISTOL-MYERS SQUIBB COMPANY-12592663

PATIENT
  Age: 38 Year
  Sex: Female

DRUGS (1)
  1. DEFINITY [Suspect]
     Indication: ECHOCARDIOGRAM
     Dosage: DILUTED
     Route: 040

REACTIONS (4)
  - DIZZINESS [None]
  - FATIGUE [None]
  - FLUSHING [None]
  - RASH ERYTHEMATOUS [None]
